FAERS Safety Report 5657416-5 (Version None)
Quarter: 2008Q1

REPORT INFORMATION
  Report Type: 
  Country: None (occurrence: None)
  Receive Date: 20080310
  Receipt Date: 20080227
  Transmission Date: 20080703
  Serious: Yes (Other)
  Sender: FDA-Public Use
  Company Number: JP-WYE-H02318708

PATIENT
  Age: 65 Year
  Sex: Male

DRUGS (11)
  1. AMIODARONE HCL [Suspect]
     Indication: VENTRICULAR TACHYCARDIA
     Route: 048
     Dates: start: 20041201, end: 20070925
  2. SOTALOL HCL [Concomitant]
     Dosage: 80 MG, FREQUENCY UNSPECIFIED
  3. LIPITOR [Concomitant]
     Dosage: 20 MG, FREQUENCY UNSPECIFIED
  4. WARFARIN SODIUM [Concomitant]
     Dosage: 1.5 MG, FREQUENCY UNSPECIFIED
  5. OMEPRAL [Concomitant]
     Dosage: 20 MG, FREQUENCY UNSPECIFIED
  6. GLYSENNID [Concomitant]
     Dosage: 12 MG, FREQUENCY UNSPECIFIED
  7. ARTIST [Concomitant]
     Dosage: 7.5 MG, FREQUENCY UNSPECIFIED
  8. ROHYPNOL [Concomitant]
     Dosage: 2 MG, FREQUENCY UNSPECIFIED
  9. COVERSYL [Concomitant]
     Dosage: 1 MG, FREQUENCY UNSPECIFIED
  10. LASIX [Concomitant]
     Dosage: 20 MG, FREQUENCY UNSPECIFIED
  11. MAGNESIUM OXIDE [Concomitant]
     Dosage: 1.5 G, FREQUENCY UNSPECIFIED

REACTIONS (1)
  - HEPATIC STEATOSIS [None]
